FAERS Safety Report 16959466 (Version 2)
Quarter: 2021Q1

REPORT INFORMATION
  Report Type: Spontaneous
  Country: IT (occurrence: IT)
  Receive Date: 20191025
  Receipt Date: 20210127
  Transmission Date: 20210419
  Serious: Yes (Other)
  Sender: FDA-Public Use
  Company Number: IT-009507513-1910ITA012491

PATIENT
  Sex: Female

DRUGS (1)
  1. GRAZOPREVIR (+) ELBASVIR [Suspect]
     Active Substance: ELBASVIR\GRAZOPREVIR
     Indication: HEPATITIS C
     Dosage: UNK
     Route: 048

REACTIONS (5)
  - Pathogen resistance [Unknown]
  - Virologic failure [Unknown]
  - Treatment failure [Unknown]
  - Therapy non-responder [Unknown]
  - Hepatitis C [Unknown]
